FAERS Safety Report 6836312-1 (Version None)
Quarter: 2010Q3

REPORT INFORMATION
  Report Type: 
  Country: None (occurrence: None)
  Receive Date: 20100713
  Receipt Date: 20100707
  Transmission Date: 20110219
  Serious: Yes (Death, Hospitalization, Disabling)
  Sender: FDA-Public Use
  Company Number: US-CELGENEUS-163-21880-10040442

PATIENT
  Sex: Female

DRUGS (2)
  1. REVLIMID [Suspect]
     Route: 048
     Dates: start: 20100201, end: 20100401
  2. REVLIMID [Suspect]
     Route: 048
     Dates: start: 20100101

REACTIONS (3)
  - CELLULITIS [None]
  - NEOPLASM PROGRESSION [None]
  - RASH [None]
